FAERS Safety Report 6198333-4 (Version None)
Quarter: 2009Q2

REPORT INFORMATION
  Report Type: 
  Country: None (occurrence: None)
  Receive Date: 20090521
  Receipt Date: 20090514
  Transmission Date: 20091009
  Serious: Yes (Death, Other)
  Sender: FDA-Public Use
  Company Number: GR-ROCHE-602305

PATIENT
  Age: 63 Year
  Sex: Female

DRUGS (5)
  1. CAPECITABINE [Suspect]
     Indication: COLORECTAL CANCER
     Dosage: ADMINISTERED DAILY FROM DAY ONE TO 14 OF 21 DAY CYCLE
     Route: 065
  2. BEVACIZUMAB [Suspect]
     Indication: COLORECTAL CANCER
     Dosage: ON DAY ONE REPEATED EVERY 21 DAYS
     Route: 065
  3. IRINOTECAN HCL [Suspect]
     Indication: COLORECTAL CANCER
     Dosage: ON DAY ONE. REPEATED EVERY 21 DAYS
     Route: 065
  4. DEXAMETHASONE 4MG TAB [Concomitant]
     Indication: PREMEDICATION
  5. ATROPINE [Concomitant]
     Indication: PREMEDICATION

REACTIONS (2)
  - AORTIC THROMBOSIS [None]
  - COLORECTAL CANCER [None]
